FAERS Safety Report 8302671-6 (Version None)
Quarter: 2012Q2

REPORT INFORMATION
  Report Type: 
  Country: None (occurrence: None)
  Receive Date: 20120420
  Receipt Date: 20120411
  Transmission Date: 20120825
  Serious: Yes (Other)
  Sender: FDA-Public Use
  Company Number: US-FRI-1000029729

PATIENT
  Age: 36 Year
  Sex: Female

DRUGS (3)
  1. LASIX [Concomitant]
     Dates: end: 20110301
  2. POTASSIUM CHLORIDE [Concomitant]
     Dates: end: 20110301
  3. LEXAPRO [Suspect]
     Indication: DEPRESSION
     Dosage: 40 MG
     Route: 048
     Dates: start: 20080101, end: 20110301

REACTIONS (3)
  - OLIGOHYDRAMNIOS [None]
  - MATERNAL EXPOSURE DURING PREGNANCY [None]
  - CONVULSION [None]
